FAERS Safety Report 5247974-7 (Version None)
Quarter: 2007Q1

REPORT INFORMATION
  Report Type: 
  Country: None (occurrence: None)
  Receive Date: 20061201
  Receipt Date: 20060815
  Transmission Date: 20070707
  Serious: No
  Sender: FDA-Public Use
  Company Number: 2006PV019498

PATIENT
  Age: 56 Year
  Sex: Male
  Weight: 122.4712 kg

DRUGS (4)
  1. BYETTA [Suspect]
     Indication: DIABETES MELLITUS NON-INSULIN-DEPENDENT
     Dosage: 5 MCG; BID; SC
     Route: 058
     Dates: start: 20060801
  2. METFORMIN HCL [Concomitant]
  3. AVANDIA [Concomitant]
  4. GLIMEPIRIDE [Concomitant]

REACTIONS (4)
  - DECREASED APPETITE [None]
  - INJECTION SITE DISCOMFORT [None]
  - STOMACH DISCOMFORT [None]
  - WEIGHT DECREASED [None]
